FAERS Safety Report 5063087-1 (Version None)
Quarter: 2006Q3

REPORT INFORMATION
  Report Type: 
  Country: None (occurrence: None)
  Receive Date: 20060727
  Receipt Date: 20060719
  Transmission Date: 20061208
  Serious: Yes (Other)
  Sender: FDA-Public Use
  Company Number: US-BRISTOL-MYERS SQUIBB COMPANY-13447479

PATIENT
  Age: 34 Year
  Sex: Female
  Weight: 72 kg

DRUGS (6)
  1. CYTOXAN [Suspect]
     Indication: BREAST CANCER
     Route: 042
     Dates: start: 20060705
  2. ADRIAMYCIN PFS [Concomitant]
     Dates: start: 20060705
  3. SYNTHROID [Concomitant]
  4. ALOXI [Concomitant]
     Indication: PREMEDICATION
     Route: 042
  5. DEXAMETHASONE TAB [Concomitant]
     Indication: PREMEDICATION
     Route: 042
  6. EMEND [Concomitant]
     Indication: PREMEDICATION
     Route: 048

REACTIONS (5)
  - BURNING SENSATION [None]
  - DIARRHOEA [None]
  - DYSPNOEA [None]
  - HYPERHIDROSIS [None]
  - VOMITING [None]
